FAERS Safety Report 4810385-X (Version None)
Quarter: 2005Q4

REPORT INFORMATION
  Report Type: 
  Country: None (occurrence: None)
  Receive Date: 20051024
  Receipt Date: 20051010
  Transmission Date: 20060501
  Serious: Yes (Death, Hospitalization, Other)
  Sender: FDA-Public Use
  Company Number: 167-20785-05100170

PATIENT
  Age: 54 Year
  Sex: Female

DRUGS (10)
  1. THALIDOMIDE - PHARMION (THALIDOMIDE) (50 MILLIGRAM, CAPSULES) [Suspect]
     Indication: NON-SMALL CELL LUNG CANCER
     Dosage: 150 MG, DAILY, ORAL
     Route: 048
     Dates: start: 20040804, end: 20050101
  2. GEMCITABINE (GEMCITABINE) [Suspect]
     Indication: NON-SMALL CELL LUNG CANCER
  3. CARBOPLATIN [Suspect]
     Indication: NON-SMALL CELL LUNG CANCER
  4. MORPHINE [Concomitant]
  5. CODANTHRUSATE [Concomitant]
  6. PROCHLORPERAZINE MALEATE [Concomitant]
  7. ACTRAPID (INSULIN HUMAN) [Concomitant]
  8. ZOPICLONE (ZOPICLONE) [Concomitant]
  9. CITALOPRAM (CITALOPRAM) [Concomitant]
  10. ORAMORPH SR [Concomitant]

REACTIONS (7)
  - ACUTE CORONARY SYNDROME [None]
  - BACK PAIN [None]
  - CONFUSIONAL STATE [None]
  - DIABETIC KETOACIDOSIS [None]
  - LOSS OF CONSCIOUSNESS [None]
  - PULMONARY EMBOLISM [None]
  - WHITE BLOOD CELL COUNT INCREASED [None]
